FAERS Safety Report 19137932 (Version 10)
Quarter: 2021Q4

REPORT INFORMATION
  Report Type: Spontaneous
  Country: US (occurrence: US)
  Receive Date: 20210415
  Receipt Date: 20211025
  Transmission Date: 20220303
  Serious: Yes (Hospitalization, Disabling)
  Sender: FDA-Public Use
  Company Number: US-BIOGEN-2021BI01001262

PATIENT
  Age: 50 Year
  Sex: Female

DRUGS (2)
  1. TECFIDERA [Suspect]
     Active Substance: DIMETHYL FUMARATE
     Indication: Multiple sclerosis
     Route: 065
     Dates: start: 20130815, end: 20210330
  2. TECFIDERA [Suspect]
     Active Substance: DIMETHYL FUMARATE
     Route: 065
     Dates: start: 20130815, end: 20201231

REACTIONS (10)
  - Multiple sclerosis relapse [Recovered/Resolved]
  - Dehydration [Unknown]
  - Mobility decreased [Recovered/Resolved]
  - Multiple sclerosis [Not Recovered/Not Resolved]
  - Gait disturbance [Recovered/Resolved]
  - Vein disorder [Not Recovered/Not Resolved]
  - Central nervous system lesion [Not Recovered/Not Resolved]
  - Fall [Recovered/Resolved]
  - Nausea [Unknown]
  - Vomiting [Unknown]

NARRATIVE: CASE EVENT DATE: 20210322
